FAERS Safety Report 6601617-6 (Version None)
Quarter: 2010Q1

REPORT INFORMATION
  Report Type: 
  Country: None (occurrence: None)
  Receive Date: 20100225
  Receipt Date: 20100204
  Transmission Date: 20100710
  Serious: Yes (Hospitalization)
  Sender: FDA-Public Use
  Company Number: JP-ROCHE-666797

PATIENT
  Sex: Female
  Weight: 42 kg

DRUGS (17)
  1. ACTEMRA [Suspect]
     Indication: RHEUMATOID ARTHRITIS
     Route: 041
     Dates: start: 20080929, end: 20080929
  2. ACTEMRA [Suspect]
     Route: 041
     Dates: start: 20081027, end: 20081027
  3. ACTEMRA [Suspect]
     Route: 041
     Dates: start: 20081125, end: 20081125
  4. ACTEMRA [Suspect]
     Route: 041
     Dates: start: 20081222, end: 20081222
  5. ACTEMRA [Suspect]
     Route: 041
     Dates: start: 20090119, end: 20090119
  6. ACTEMRA [Suspect]
     Route: 041
     Dates: start: 20090216, end: 20090216
  7. ACTEMRA [Suspect]
     Route: 041
     Dates: start: 20090316, end: 20090316
  8. ACTEMRA [Suspect]
     Route: 041
     Dates: start: 20091105, end: 20091105
  9. PREDNISOLONE [Concomitant]
     Route: 048
  10. KLARICID [Concomitant]
     Route: 048
  11. MUCODYNE [Concomitant]
     Route: 048
  12. LOXONIN [Concomitant]
     Dosage: DRUG NAME: LOXOPROFEN SODIUM.
     Route: 048
  13. MUCOSTA [Concomitant]
     Route: 048
  14. AMOBAN [Concomitant]
     Route: 048
  15. TAKEPRON [Concomitant]
     Route: 048
  16. BONALON [Concomitant]
     Dosage: DRUG NAME: BONALON 35MG(ALENDRONATE SODIUM HYDRATE)
     Route: 048
  17. MUCOSOLVAN [Concomitant]
     Dosage: DRUG : MUCOSOLVAN L(AMBROXOL HYDROCHLORIDE)
     Route: 048

REACTIONS (2)
  - DIVERTICULUM INTESTINAL HAEMORRHAGIC [None]
  - HYPERLIPIDAEMIA [None]
